FAERS Safety Report 18601245 (Version 2)
Quarter: 2021Q4

REPORT INFORMATION
  Report Type: Spontaneous
  Country: US (occurrence: US)
  Receive Date: 20201210
  Receipt Date: 20211208
  Transmission Date: 20220303
  Serious: No
  Sender: FDA-Public Use
  Company Number: US-AMERICAN REGENT INC-2020002247

PATIENT
  Sex: Female

DRUGS (1)
  1. VENOFER [Suspect]
     Active Substance: IRON SUCROSE
     Indication: Anaemia
     Dosage: 500 MILLIGRAM, FIRST DOSE OF VENOFER
     Route: 042
     Dates: start: 20201002, end: 20201002

REACTIONS (3)
  - Maternal exposure during pregnancy [Unknown]
  - Movement disorder [Recovered/Resolved]
  - Peripheral swelling [Recovered/Resolved]
